FAERS Safety Report 8513928-8 (Version None)
Quarter: 2012Q3

REPORT INFORMATION
  Report Type: 
  Country: None (occurrence: None)
  Receive Date: 20120705
  Receipt Date: 20120625
  Transmission Date: 20120928
  Serious: Yes (Hospitalization)
  Sender: FDA-Public Use
  Company Number: 2012SP035835

PATIENT
  Age: 58 Year
  Sex: Male

DRUGS (2)
  1. PEG-INTRON [Suspect]
     Indication: HEPATITIS C
     Dates: start: 20120401
  2. INCIVEK [Suspect]
     Indication: PRODUCT USED FOR UNKNOWN INDICATION

REACTIONS (13)
  - DRY SKIN [None]
  - DIZZINESS [None]
  - ABDOMINAL PAIN [None]
  - CHILLS [None]
  - MIGRAINE [None]
  - HYPOAESTHESIA [None]
  - HYPOTENSION [None]
  - PAIN [None]
  - AGEUSIA [None]
  - MYALGIA [None]
  - WHITE BLOOD CELL COUNT DECREASED [None]
  - GASTRITIS [None]
  - IRRITABLE BOWEL SYNDROME [None]
